FAERS Safety Report 9465739 (Version 1)
Quarter: 2013Q3

REPORT INFORMATION
  Report Type: Spontaneous
  Country: US (occurrence: US)
  Receive Date: 20130820
  Receipt Date: 20130820
  Transmission Date: 20140515
  Serious: Yes (Other)
  Sender: FDA-Public Use
  Company Number: US-ASTELLAS-2012US006976

PATIENT
  Age: 52 Year
  Sex: Female

DRUGS (1)
  1. AMBISOME [Suspect]
     Indication: ZYGOMYCOSIS
     Dosage: 450 MG, UID/QD
     Route: 065

REACTIONS (1)
  - Nephropathy toxic [Unknown]
